FAERS Safety Report 16104113 (Version 1)
Quarter: 2019Q1

REPORT INFORMATION
  Report Type: Spontaneous
  Country: GB (occurrence: GB)
  Receive Date: 20190322
  Receipt Date: 20190322
  Transmission Date: 20190418
  Serious: Yes (Other)
  Sender: FDA-Public Use
  Company Number: GB-ACCORD-113795

PATIENT
  Age: 70 Year
  Sex: Female
  Weight: 88 kg

DRUGS (14)
  1. ACETYLSALICYLIC ACID [Concomitant]
     Active Substance: ASPIRIN
     Dates: start: 20171002
  2. GALFER [Concomitant]
     Active Substance: IRON
     Dates: start: 20181119
  3. ZAPAIN [Concomitant]
     Active Substance: ACETAMINOPHEN\CODEINE PHOSPHATE
     Dates: start: 20171002
  4. FLEXITOL HEEL [Concomitant]
     Dosage: APPLY.
     Dates: start: 20181114
  5. IRON [Concomitant]
     Active Substance: IRON
     Dates: start: 20180112, end: 20181119
  6. RAMIPRIL. [Concomitant]
     Active Substance: RAMIPRIL
     Dosage: IN THE MORNING.
     Dates: start: 20171002
  7. RISEDRONIC ACID [Concomitant]
     Active Substance: RISEDRONIC ACID
     Dates: start: 20181119
  8. FELODIPINE. [Concomitant]
     Active Substance: FELODIPINE
     Dates: start: 20180611
  9. ATORVASTATIN/ATORVASTATIN CALCIUM [Suspect]
     Active Substance: ATORVASTATIN CALCIUM
     Indication: PRODUCT USED FOR UNKNOWN INDICATION
     Dates: start: 20171002
  10. CARMELLOSE [Concomitant]
     Dosage: INTO LEFT EYE.
     Dates: start: 20171002
  11. STEXEROL-D3 [Concomitant]
     Dates: start: 20171002
  12. METFORMIN [Concomitant]
     Active Substance: METFORMIN HYDROCHLORIDE
     Dosage: WITH BREAKFAST.
     Dates: start: 20171002
  13. ALENDRONATE SODIUM/ALENDRONIC ACID [Concomitant]
     Dates: start: 20171002, end: 20181119
  14. OMEPRAZOLE. [Concomitant]
     Active Substance: OMEPRAZOLE
     Dates: start: 20171002

REACTIONS (1)
  - Lethargy [Recovered/Resolved]

NARRATIVE: CASE EVENT DATE: 20181119
